FAERS Safety Report 10243496 (Version 1)
Quarter: 2014Q2

REPORT INFORMATION
  Report Type: Spontaneous
  Country: JP (occurrence: JP)
  Receive Date: 20140618
  Receipt Date: 20140618
  Transmission Date: 20141212
  Serious: Yes (Hospitalization)
  Sender: FDA-Public Use
  Company Number: JP-SA-2014SA079734

PATIENT
  Age: 67 Year
  Sex: Male

DRUGS (1)
  1. AMARYL [Suspect]
     Indication: PRODUCT USED FOR UNKNOWN INDICATION
     Route: 048

REACTIONS (3)
  - Hypoglycaemia [Unknown]
  - Somnolence [Unknown]
  - Road traffic accident [Unknown]
